FAERS Safety Report 5904962-2 (Version None)
Quarter: 2008Q4

REPORT INFORMATION
  Report Type: 
  Country: None (occurrence: None)
  Receive Date: 20081001
  Receipt Date: 20080923
  Transmission Date: 20090506
  Serious: Yes (Other)
  Sender: FDA-Public Use
  Company Number: BR-WYE-H06142608

PATIENT
  Age: 32 Year
  Sex: Female

DRUGS (7)
  1. EFFEXOR [Suspect]
  2. EFFEXOR [Suspect]
  3. EFFEXOR [Suspect]
  4. EFFEXOR [Suspect]
  5. EFFEXOR [Suspect]
     Dosage: REDUCING 37.5 MG EVERY WEEK
  6. MIDAZOLAM [Concomitant]
     Indication: MAJOR DEPRESSION
     Dosage: UNSPECIFIED
  7. TIMOLOL [Concomitant]
     Indication: DEVELOPMENTAL GLAUCOMA
     Dosage: 2 APPLICATIONS DAILY

REACTIONS (3)
  - DISTURBANCE IN ATTENTION [None]
  - INTRAOCULAR PRESSURE INCREASED [None]
  - IRRITABILITY [None]
